FAERS Safety Report 9011945 (Version 1)
Quarter: 2012Q4

REPORT INFORMATION
  Report Type: Spontaneous
  Country: NO (occurrence: None)
  Receive Date: 20121228
  Receipt Date: 20121228
  Transmission Date: 20130627
  Serious: Yes (Hospitalization)
  Sender: FDA-Public Use
  Company Number: FK201204065

PATIENT
  Age: 75 Year
  Sex: Female

DRUGS (7)
  1. IRINOTECAN (IRINOTECAN) [Suspect]
     Indication: COLON CANCER
     Dates: start: 20121105
  2. FLUOROURACIL (FLUOROURACIL) [Suspect]
     Indication: COLON CANCER
     Dates: start: 20121105
  3. AVASTIN (BEVACIZUMAB) [Suspect]
     Indication: COLON CANCER
     Dates: start: 20121105
  4. CALCIUM FOLINATE (CALCIUM FOLINATE) [Concomitant]
  5. ONDANSETRON (ONDANSETRON) [Concomitant]
  6. FORTECORTIN (DEXAMETHASONE) [Concomitant]
  7. ATROPINE (ATROPINE) [Concomitant]

REACTIONS (5)
  - Fatigue [None]
  - Muscle twitching [None]
  - Walking aid user [None]
  - Movement disorder [None]
  - Muscular weakness [None]
